FAERS Safety Report 19470516 (Version 1)
Quarter: 2021Q2

REPORT INFORMATION
  Report Type: Spontaneous
  Country: US (occurrence: US)
  Receive Date: 20210629
  Receipt Date: 20210629
  Transmission Date: 20210717
  Serious: Yes (Other)
  Sender: FDA-Public Use
  Company Number: US-LUPIN PHARMACEUTICALS INC.-2021-10393

PATIENT
  Age: 71 Year
  Sex: Male

DRUGS (7)
  1. MONTELUKAST [Suspect]
     Active Substance: MONTELUKAST SODIUM
     Indication: GRANULOMA ANNULARE
     Dosage: UNK
     Route: 065
  2. ASPIRIN. [Suspect]
     Active Substance: ASPIRIN
     Indication: GRANULOMA ANNULARE
     Dosage: UNK
     Route: 065
  3. BETAMETHASONE. [Suspect]
     Active Substance: BETAMETHASONE
     Indication: GRANULOMA ANNULARE
     Dosage: UNK
     Route: 065
  4. CALCIPOTRIENE. [Suspect]
     Active Substance: CALCIPOTRIENE
     Indication: GRANULOMA ANNULARE
     Dosage: UNK
     Route: 065
  5. DAPSONE. [Suspect]
     Active Substance: DAPSONE
     Indication: GRANULOMA ANNULARE
     Dosage: UNK
     Route: 065
  6. TRIAMCINOLONE [Suspect]
     Active Substance: TRIAMCINOLONE
     Indication: GRANULOMA ANNULARE
     Dosage: UNK
     Route: 026
  7. NIACINAMIDE [Suspect]
     Active Substance: NIACINAMIDE
     Indication: GRANULOMA ANNULARE
     Dosage: UNK
     Route: 065

REACTIONS (1)
  - Multiple-drug resistance [Unknown]
